FAERS Safety Report 20819767 (Version 1)
Quarter: 2022Q2

REPORT INFORMATION
  Report Type: Report from Study
  Country: US (occurrence: None)
  Receive Date: 20220512
  Receipt Date: 20220512
  Transmission Date: 20220721
  Serious: Yes (Hospitalization)
  Sender: FDA-Public Use
  Company Number: US-ROCHE-1042386

PATIENT
  Age: 65 Year
  Sex: Female
  Weight: 104.6 kg

DRUGS (3)
  1. BEVACIZUMAB [Suspect]
     Active Substance: BEVACIZUMAB
     Indication: Ovarian epithelial cancer
     Dosage: 15 MG/KG IV OVER 30-90 MINUTES ON DAY 1 OF CYCLES 2, 5, 6 AND CONTINUING Q3 WEEKS AFTER?BEVACIZUMAB
     Route: 042
     Dates: start: 20111026
  2. CARBOPLATIN [Suspect]
     Active Substance: CARBOPLATIN
     Indication: Ovarian epithelial cancer
     Dosage: AUC = 6 IV
     Route: 042
     Dates: start: 20111026
  3. PACLITAXEL [Suspect]
     Active Substance: PACLITAXEL
     Indication: Ovarian epithelial cancer
     Route: 042
     Dates: start: 20111026

REACTIONS (4)
  - Wound dehiscence [Unknown]
  - Pain in extremity [Unknown]
  - Ileus [Unknown]
  - Anaemia [Unknown]

NARRATIVE: CASE EVENT DATE: 20120108
